FAERS Safety Report 18807597 (Version 1)
Quarter: 2021Q1

REPORT INFORMATION
  Report Type: Spontaneous
  Country: US (occurrence: US)
  Receive Date: 20210129
  Receipt Date: 20210129
  Transmission Date: 20210419
  Serious: Yes (Other)
  Sender: FDA-Public Use
  Company Number: US-ACCORD-215633

PATIENT
  Age: 7 Year
  Sex: Male

DRUGS (1)
  1. HYDROXYCHLOROQUINE [Suspect]
     Active Substance: HYDROXYCHLOROQUINE
     Indication: COVID-19
     Dosage: ONE DOSE

REACTIONS (7)
  - Mental status changes [Unknown]
  - Aphasia [Unknown]
  - Miosis [Unknown]
  - Brudzinski^s sign [Unknown]
  - Rash [Unknown]
  - Off label use [Unknown]
  - Unresponsive to stimuli [Unknown]
